FAERS Safety Report 9228277 (Version 1)
Quarter: 2013Q1

REPORT INFORMATION
  Report Type: Spontaneous
  Country: US (occurrence: None)
  Receive Date: 20121024
  Receipt Date: 20121024
  Transmission Date: 20140127
  Serious: Yes (Other)
  Sender: FDA-Public Use
  Company Number: DSA_57647_2012

PATIENT
  Sex: Female

DRUGS (2)
  1. WELLBUTRIN [Suspect]
     Indication: SMOKING CESSATION THERAPY
     Dosage: (DF)
  2. NICOTINE [Suspect]
     Indication: SMOKING CESSATION THERAPY
     Dosage: (DF TRANSDERMAL)
     Route: 062

REACTIONS (3)
  - Convulsion [None]
  - Vomiting [None]
  - Nausea [None]
